FAERS Safety Report 22222873 (Version 1)
Quarter: 2023Q2

REPORT INFORMATION
  Report Type: Report from Study
  Country: IN (occurrence: IN)
  Receive Date: 20230418
  Receipt Date: 20230418
  Transmission Date: 20230722
  Serious: Yes (Other)
  Sender: FDA-Public Use
  Company Number: IN-002147023-NVSC2023IN087214

PATIENT
  Age: 53 Year
  Sex: Female

DRUGS (2)
  1. ELTROMBOPAG OLAMINE [Suspect]
     Active Substance: ELTROMBOPAG OLAMINE
     Indication: Aplastic anaemia
     Dosage: 150 MG, QD
     Route: 048
     Dates: start: 20221031
  2. ELTROMBOPAG OLAMINE [Suspect]
     Active Substance: ELTROMBOPAG OLAMINE
     Dosage: 150 MG, QD
     Route: 065
     Dates: start: 20230315

REACTIONS (17)
  - Pain [Unknown]
  - Full blood count decreased [Unknown]
  - Dizziness [Unknown]
  - Dyspnoea [Unknown]
  - Mouth haemorrhage [Unknown]
  - Epistaxis [Unknown]
  - Petechiae [Unknown]
  - Haemoglobin decreased [Unknown]
  - Blood creatinine decreased [Unknown]
  - Decreased appetite [Unknown]
  - White blood cell count decreased [Unknown]
  - Blister [Unknown]
  - Headache [Unknown]
  - Nausea [Unknown]
  - Vomiting [Unknown]
  - Purpura [Unknown]
  - Pyrexia [Unknown]

NARRATIVE: CASE EVENT DATE: 20220517
